FAERS Safety Report 6128684-0 (Version None)
Quarter: 2009Q1

REPORT INFORMATION
  Report Type: 
  Country: None (occurrence: None)
  Receive Date: 20090323
  Receipt Date: 20090311
  Transmission Date: 20090719
  Serious: Yes (Other)
  Sender: FDA-Public Use
  Company Number: CA-PFIZER INC-2009169245

PATIENT

DRUGS (7)
  1. CHAMPIX [Suspect]
     Indication: SMOKING CESSATION THERAPY
     Dosage: UNK
     Route: 048
     Dates: start: 20090116, end: 20090212
  2. VALIUM [Concomitant]
     Indication: INSOMNIA
     Dosage: UNK
  3. SEROQUEL [Concomitant]
     Indication: INSOMNIA
     Dosage: UNK
  4. PREVACID [Concomitant]
     Dosage: UNK
  5. ATACAND [Concomitant]
     Dosage: UNK
  6. TRAZODONE HYDROCHLORIDE [Concomitant]
     Dosage: UNK
  7. ACETAMINOPHEN [Concomitant]
     Dosage: UNK

REACTIONS (8)
  - ABNORMAL BEHAVIOUR [None]
  - AGGRESSION [None]
  - BLOOD PRESSURE INCREASED [None]
  - DEPRESSION [None]
  - DYSPNOEA [None]
  - HEADACHE [None]
  - INSOMNIA [None]
  - MOOD ALTERED [None]
